FAERS Safety Report 6536999-7 (Version None)
Quarter: 2010Q1

REPORT INFORMATION
  Report Type: 
  Country: None (occurrence: None)
  Receive Date: 20100107
  Receipt Date: 20091225
  Transmission Date: 20100710
  Serious: Yes (Hospitalization)
  Sender: FDA-Public Use
  Company Number: 091231-0001275

PATIENT
  Age: 40 Day
  Sex: Male

DRUGS (4)
  1. INDOCIN [Suspect]
     Indication: PATENT DUCTUS ARTERIOSUS
     Dosage: IV
     Route: 042
  2. PROTEIN [Concomitant]
  3. AMINO ACIDS [Concomitant]
  4. PREPARATIONS [Concomitant]

REACTIONS (2)
  - INTUSSUSCEPTION [None]
  - PULMONARY HAEMORRHAGE [None]
